FAERS Safety Report 8937106 (Version 1)
Quarter: 2012Q4

REPORT INFORMATION
  Report Type: Spontaneous
  Country: US (occurrence: None)
  Receive Date: 20121128
  Receipt Date: 20121128
  Transmission Date: 20130627
  Serious: Yes (Hospitalization)
  Sender: FDA-Public Use
  Company Number: None

PATIENT
  Age: 68 Year
  Sex: Female

DRUGS (2)
  1. FENTANYL PATCH [Suspect]
     Indication: PAIN
     Dosage: 75 mcg  q3days  Transdermal
     Route: 062
  2. NORCO [Suspect]
     Indication: PAIN
     Dosage: 10/325 mg  q4hprn po
     Route: 048

REACTIONS (3)
  - Unresponsive to stimuli [None]
  - Glassy eyes [None]
  - Miosis [None]
